FAERS Safety Report 5714738-7 (Version None)
Quarter: 2008Q2

REPORT INFORMATION
  Report Type: 
  Country: None (occurrence: None)
  Receive Date: 20080423
  Receipt Date: 20050826
  Transmission Date: 20081010
  Serious: Yes (Death)
  Sender: FDA-Public Use
  Company Number: DE-ROCHE-415594

PATIENT
  Sex: Male
  Weight: 83 kg

DRUGS (3)
  1. CAPECITABINE [Suspect]
     Dosage: TAKEN ON DAYS ONE TO FOURTEEN OF EACH THREE WEEK CYCLE
     Route: 048
     Dates: start: 20050701
  2. DOCETAXEL [Suspect]
     Dosage: ON DAYS ONE AND EIGHT OF EACH THREE WEEK CYCLE
     Route: 042
     Dates: start: 20050701, end: 20050729
  3. OXALIPLATIN [Suspect]
     Dosage: ON DAYS ONE AND EIGHT OF EACH THREE WEEK CYCLE
     Route: 042
     Dates: start: 20050701, end: 20050729

REACTIONS (1)
  - DEATH [None]
